FAERS Safety Report 5956981-8 (Version None)
Quarter: 2008Q4

REPORT INFORMATION
  Report Type: 
  Country: None (occurrence: None)
  Receive Date: 20081031
  Receipt Date: 20080819
  Transmission Date: 20090506
  Serious: No
  Sender: FDA-Public Use
  Company Number: 2008PV036497

PATIENT
  Sex: Female
  Weight: 142.4295 kg

DRUGS (4)
  1. SYMLIN [Suspect]
     Indication: TYPE 2 DIABETES MELLITUS
     Dosage: 330 MCG; BID; SC; 270 MCG; BID; SC; 210 MCG; BID; SC; ;150 MCG; BID; SC;  90 MCG; BID; SC
     Route: 058
     Dates: start: 20060101, end: 20060101
  2. JANUMET [Suspect]
     Dates: end: 20060101
  3. GLIMEPIRIDE [Concomitant]
  4. BENICAR [Concomitant]

REACTIONS (5)
  - CARDIAC DISCOMFORT [None]
  - FATIGUE [None]
  - FLUSHING [None]
  - NERVOUSNESS [None]
  - VISUAL IMPAIRMENT [None]
